FAERS Safety Report 12520041 (Version 1)
Quarter: 2016Q2

REPORT INFORMATION
  Report Type: Spontaneous
  Country: US (occurrence: US)
  Receive Date: 20160630
  Receipt Date: 20160630
  Transmission Date: 20160815
  Serious: No
  Sender: FDA-Public Use
  Company Number: US-PFIZER INC-2016085839

PATIENT
  Age: 54 Year
  Sex: Female

DRUGS (25)
  1. LANTUS [Concomitant]
     Active Substance: INSULIN GLARGINE
     Dosage: 30 IU, 1X/DAY (30 UNITS AT BEDTIME)
  2. FLONASE [Concomitant]
     Active Substance: FLUTICASONE PROPIONATE
     Dosage: 50 UG, DAILY
     Route: 045
  3. AMOXIL [Concomitant]
     Active Substance: AMOXICILLIN
     Dosage: 875 MG, UNK (TAKE 875 MG TOTAL (1 TABLET) BY MOUTH EVERY 12 HOURS)
     Route: 048
     Dates: start: 20151021
  4. INSULIN [Concomitant]
     Active Substance: INSULIN NOS
     Indication: DIABETES MELLITUS
     Dosage: UNK (BOLUS: 1 UNIT FOR EVERY 15 GM CARB)
  5. PROVENTIL HFA [Concomitant]
     Active Substance: ALBUTEROL SULFATE
     Dosage: 2 DF, UNK (90 MCG/ACTUATION INHALER (TAKING) : INHALE 2 PUFFS INTO THE LUNGS EVERY 4 HOURS)
     Route: 045
     Dates: start: 20150324
  6. INSULIN GLARGINE [Concomitant]
     Active Substance: INSULIN GLARGINE
     Dosage: 40 IU, DAILY
     Route: 058
     Dates: start: 20151125
  7. PROTONIX [Concomitant]
     Active Substance: PANTOPRAZOLE SODIUM
     Dosage: 40 MG, 1X/DAY (MORNING BEFORE BREAKFAST)
     Route: 048
     Dates: start: 20150105
  8. HUMALOG [Concomitant]
     Active Substance: INSULIN LISPRO
     Dosage: UNK (INJECT 9-10 UNITS WITH BREAKFAST. 9 UNITS FOR LUNCH, AND 14 UNITS AT SUPPER)
     Dates: start: 20150119, end: 20160119
  9. LYRICA [Suspect]
     Active Substance: PREGABALIN
     Indication: NEUROPATHY PERIPHERAL
     Dosage: 100 MG, (TAKE 100 MG TOTAL (1 CAPSULE) BY MOUTH 2 TIMES DAILY)
     Route: 048
     Dates: start: 20120120
  10. METFORMIN [Concomitant]
     Active Substance: METFORMIN HYDROCHLORIDE
     Indication: DIABETES MELLITUS
     Dosage: 1000 MG, 2X/DAY
  11. NEURONTIN [Concomitant]
     Active Substance: GABAPENTIN
     Dosage: 600 MG, UNK (300 MG CAPSULE (TAKING): TAKE 600 MG TOTAL (2 CAPSULES) BY MOUTH 4 (FOUR) TIMES DAILY)
     Route: 048
     Dates: start: 20151125
  12. MEVACOR [Concomitant]
     Active Substance: LOVASTATIN
     Dosage: 20 MG, DAILY
     Route: 048
     Dates: start: 20151008
  13. ZOCOR [Concomitant]
     Active Substance: SIMVASTATIN
     Dosage: 20 MG, 1X/DAY
     Route: 048
     Dates: start: 20151125
  14. CHERATUSSIN AC [Concomitant]
     Active Substance: CODEINE PHOSPHATE\GUAIFENESIN
     Dosage: 5 ML, EVERY 4 HRS (10100 MG/5 ML SYRUP:TAKE 5 ML BY MOUTH EVERY 4 HOURS)
     Route: 048
     Dates: start: 20151021
  15. REGLAN [Concomitant]
     Active Substance: METOCLOPRAMIDE HYDROCHLORIDE
     Dosage: 10 MG, 3X/DAY
     Route: 048
     Dates: start: 20150129
  16. HUMALOG [Concomitant]
     Active Substance: INSULIN LISPRO
     Dosage: 15 IU, 1X/DAY (15 UNITS BEFORE MEALS )
  17. VENTOLIN HFA [Concomitant]
     Active Substance: ALBUTEROL SULFATE
     Dosage: 2 DF, UNK (2 DF, UNK (90 MCG/ACTUATION INHALER (TAKING) : INHALE 2 PUFFS INTO THE LUNGS EVERY 4 HOU)
     Route: 045
     Dates: start: 20150324
  18. LYRICA [Suspect]
     Active Substance: PREGABALIN
     Dosage: 100 MG, 2X/DAY
     Dates: start: 20151125, end: 20160120
  19. EFFEXOR XR [Suspect]
     Active Substance: VENLAFAXINE HYDROCHLORIDE
     Dosage: 75 MG, DAILY
     Route: 048
     Dates: start: 20120120
  20. LANTUS [Concomitant]
     Active Substance: INSULIN GLARGINE
     Dosage: 28 IU, 1X/DAY (28 UNITS AT BEDTIME)
  21. ADVAIR HFA [Concomitant]
     Active Substance: FLUTICASONE PROPIONATE\SALMETEROL XINAFOATE
     Dosage: 1 DF, 2X/DAY (LNHALE 1 PUFF INTO LUNGS 2 TIMES DAILY)
     Route: 045
     Dates: start: 20150403
  22. EFFEXOR XR [Suspect]
     Active Substance: VENLAFAXINE HYDROCHLORIDE
     Dosage: 75 MG, DAILY
     Dates: start: 20160119, end: 20160120
  23. LANTUS [Concomitant]
     Active Substance: INSULIN GLARGINE
     Indication: DIABETES MELLITUS
     Dosage: 32 IU, UNK (32 UNITS SQ IN PM)
     Route: 058
     Dates: start: 20150721
  24. TENORMIN [Concomitant]
     Active Substance: ATENOLOL
     Dosage: 50 MG, DAILY
     Route: 048
     Dates: start: 20150313
  25. WELLBUTRIN XL [Concomitant]
     Active Substance: BUPROPION HYDROCHLORIDE
     Dosage: 150 MG, 2X/DAY
     Route: 048
     Dates: start: 20151016

REACTIONS (1)
  - Crying [Unknown]
